FAERS Safety Report 8520876-6 (Version None)
Quarter: 2012Q3

REPORT INFORMATION
  Report Type: 
  Country: None (occurrence: None)
  Receive Date: 20120719
  Receipt Date: 20120710
  Transmission Date: 20120928
  Serious: Yes (Hospitalization)
  Sender: FDA-Public Use
  Company Number: CA-JNJFOC-20120705372

PATIENT
  Sex: Female
  Weight: 59.1 kg

DRUGS (4)
  1. ASACOL [Concomitant]
     Route: 065
  2. METHOTREXATE [Suspect]
     Indication: PRODUCT USED FOR UNKNOWN INDICATION
     Route: 065
  3. IMURAN [Concomitant]
     Dosage: OD
     Route: 048
  4. REMICADE [Suspect]
     Indication: COLITIS ULCERATIVE
     Route: 042
     Dates: start: 20110601

REACTIONS (2)
  - TOXICITY TO VARIOUS AGENTS [None]
  - PNEUMONIA [None]
